FAERS Safety Report 8470929-6 (Version None)
Quarter: 2012Q2

REPORT INFORMATION
  Report Type: 
  Country: None (occurrence: None)
  Receive Date: 20120620
  Receipt Date: 20120615
  Transmission Date: 20120825
  Serious: Yes (Hospitalization)
  Sender: FDA-Public Use
  Company Number: SP05819

PATIENT
  Age: 78 Year
  Sex: Female

DRUGS (5)
  1. VERAPAMIL [Concomitant]
  2. OSMOPREP [Suspect]
     Indication: BOWEL PREPARATION
     Dosage: (32 DOSAGE FORMS),ORAL
     Route: 048
     Dates: start: 20120305
  3. VALSARTAN [Concomitant]
  4. VALPROATE SODIUM [Concomitant]
  5. ZOPICLONE [Concomitant]

REACTIONS (4)
  - ASTHENIA [None]
  - ACUTE PHOSPHATE NEPHROPATHY [None]
  - RENAL FAILURE [None]
  - WEIGHT DECREASED [None]
